FAERS Safety Report 5214806-2 (Version None)
Quarter: 2007Q1

REPORT INFORMATION
  Report Type: 
  Country: None (occurrence: None)
  Receive Date: 20070122
  Receipt Date: 20070112
  Transmission Date: 20070707
  Serious: Yes (Other)
  Sender: FDA-Public Use
  Company Number: US-SANOFI-SYNTHELABO-A03200700357

PATIENT
  Sex: Male

DRUGS (9)
  1. FLUOROURACIL [Suspect]
     Indication: COLON CANCER
     Dosage: UNK
     Route: 065
  2. LEUCOVORIN CALCIUM [Suspect]
     Indication: COLON CANCER
     Dosage: UNK
     Route: 065
  3. ZITHROMAX [Concomitant]
     Dosage: UNK
     Route: 065
  4. ELOXATIN [Suspect]
     Indication: COLON CANCER
     Route: 042
     Dates: start: 20061214, end: 20061214
  5. KYTRIL [Concomitant]
     Dosage: UNK
     Route: 065
  6. IRON [Concomitant]
     Dosage: UNK
     Route: 065
  7. M.V.I. [Concomitant]
     Dosage: UNK
     Route: 065
  8. ENALAPRIL MALEATE [Concomitant]
     Dosage: UNK
     Route: 048
  9. METFORMIN HCL [Concomitant]
     Dosage: UNK
     Route: 048

REACTIONS (1)
  - CARDIOMYOPATHY [None]
